FAERS Safety Report 9050417 (Version 1)
Quarter: 2013Q1

REPORT INFORMATION
  Report Type: Spontaneous
  Country: US (occurrence: US)
  Receive Date: 20130205
  Receipt Date: 20130205
  Transmission Date: 20140127
  Serious: No
  Sender: FDA-Public Use
  Company Number: US-PFIZER INC-2013042251

PATIENT
  Age: 81 Year
  Sex: Female

DRUGS (2)
  1. REVATIO [Suspect]
     Indication: HYPERTENSION
     Dosage: 20 MG, 2X/DAY
     Dates: start: 20121020
  2. REVATIO [Suspect]
     Indication: PULMONARY HYPERTENSION

REACTIONS (1)
  - Influenza [Unknown]
